FAERS Safety Report 7645266-X (Version None)
Quarter: 2011Q3

REPORT INFORMATION
  Report Type: 
  Country: None (occurrence: None)
  Receive Date: 20110729
  Receipt Date: 20110714
  Transmission Date: 20111222
  Serious: Yes (Other)
  Sender: FDA-Public Use
  Company Number: JP-JNJFOC-20110712004

PATIENT
  Age: 86 Year
  Sex: Female

DRUGS (2)
  1. ZYRTEC [Suspect]
     Route: 048
  2. ZYRTEC [Suspect]
     Indication: URTICARIA CHRONIC
     Dosage: 10MG/DAY AS NEEDED
     Route: 048
     Dates: start: 20110427, end: 20110706

REACTIONS (1)
  - HEPATIC FUNCTION ABNORMAL [None]
